FAERS Safety Report 24170803 (Version 2)
Quarter: 2024Q3

REPORT INFORMATION
  Report Type: Report from Study
  Country: US (occurrence: US)
  Receive Date: 20240805
  Receipt Date: 20240809
  Transmission Date: 20241017
  Serious: Yes (Hospitalization)
  Sender: SAREPTA THERAPEUTICS
  Company Number: US-SAREPTA THERAPEUTICS INC.-SRP2024-004896

PATIENT
  Age: 6 Year
  Sex: Male

DRUGS (1)
  1. ELEVIDYS [Suspect]
     Active Substance: DELANDISTROGENE MOXEPARVOVEC-ROKL
     Indication: Product used for unknown indication
     Dosage: UNK
     Route: 042
     Dates: start: 20231031, end: 20231031

REACTIONS (2)
  - Blood creatine phosphokinase increased [Unknown]
  - Fatigue [Unknown]

NARRATIVE: CASE EVENT DATE: 20240723
